FAERS Safety Report 14699216 (Version 2)
Quarter: 2018Q2

REPORT INFORMATION
  Report Type: Report from Study
  Country: GB (occurrence: GB)
  Receive Date: 20180330
  Receipt Date: 20180502
  Transmission Date: 20180711
  Serious: Yes (Hospitalization, Disabling)
  Sender: FDA-Public Use
  Company Number: GB-AMGEN-GBRSL2018041667

PATIENT
  Age: 59 Year
  Sex: Male
  Weight: 81.8 kg

DRUGS (1)
  1. REPATHA [Suspect]
     Active Substance: EVOLOCUMAB
     Indication: BLOOD CHOLESTEROL INCREASED
     Dosage: 140 MG, Q2WK
     Route: 058
     Dates: start: 20180319

REACTIONS (6)
  - Influenza like illness [Recovered/Resolved]
  - Headache [Recovering/Resolving]
  - Dyspnoea [Recovered/Resolved]
  - Neck pain [Recovering/Resolving]
  - Lethargy [Recovering/Resolving]
  - Restrictive pulmonary disease [Unknown]

NARRATIVE: CASE EVENT DATE: 20180319
